FAERS Safety Report 6112256-8 (Version None)
Quarter: 2009Q1

REPORT INFORMATION
  Report Type: 
  Country: None (occurrence: None)
  Receive Date: 20090310
  Receipt Date: 20090226
  Transmission Date: 20090719
  Serious: Yes (Other)
  Sender: FDA-Public Use
  Company Number: 2009SP004905

PATIENT

DRUGS (3)
  1. PEG-INTRON [Suspect]
     Indication: HEPATITIS C
     Dates: start: 20081101, end: 20090101
  2. REBETOL [Suspect]
     Indication: HEPATITIS C
     Dates: start: 20081101, end: 20090101
  3. ANTABUSE [Concomitant]

REACTIONS (1)
  - HEPATIC FAILURE [None]
